FAERS Safety Report 5383855-6 (Version None)
Quarter: 2007Q3

REPORT INFORMATION
  Report Type: 
  Country: None (occurrence: None)
  Receive Date: 20070706
  Receipt Date: 20070629
  Transmission Date: 20080115
  Serious: Yes (Death, Other)
  Sender: FDA-Public Use
  Company Number: 163-21880-06100621

PATIENT
  Age: 88 Year
  Sex: Male

DRUGS (11)
  1. REVLIMID [Suspect]
     Indication: MULTIPLE MYELOMA
     Dosage: 25 MG, DAILY FOR 21 DAYS Q28 DAYS,  ORAL
     Route: 048
     Dates: start: 20060817, end: 20060820
  2. DECADRON [Suspect]
     Indication: MULTIPLE MYELOMA
     Dosage: X5 TABS BID, ONCE WEEKLY; ORAL
     Route: 048
  3. VYTORIN (INEGY) (TABLETS) [Concomitant]
  4. FLOMAX (TAMSULOSIN HYDROCHLORIDE) (TABLETS) [Concomitant]
  5. NITRO (GLYCERYL TRINITRATE) (POULTICE OR PATCH) [Concomitant]
  6. BABY ASPIRIN (ACETYLSALICYLIC ACID) (TABLETS) [Concomitant]
  7. COUMADIN [Concomitant]
  8. METFORMIN (METFORMIN) (TABLETS) [Concomitant]
  9. PROTONIX (PANTOPRAZOLE) (TABLETS) [Concomitant]
  10. ARANESP [Concomitant]
  11. ZOMETA [Concomitant]

REACTIONS (8)
  - ALANINE AMINOTRANSFERASE INCREASED [None]
  - BLOOD GLUCOSE INCREASED [None]
  - HAEMATOCRIT DECREASED [None]
  - HAEMOGLOBIN DECREASED [None]
  - HYPERSENSITIVITY [None]
  - MYOCARDIAL INFARCTION [None]
  - PROTEIN TOTAL DECREASED [None]
  - RASH [None]
